FAERS Safety Report 14065467 (Version 6)
Quarter: 2021Q4

REPORT INFORMATION
  Report Type: Spontaneous
  Country: US (occurrence: US)
  Receive Date: 20171009
  Receipt Date: 20211115
  Transmission Date: 20220304
  Serious: Yes (Death, Hospitalization, Other)
  Sender: FDA-Public Use
  Company Number: US-OTSUKA-2017_021456

PATIENT
  Sex: Female
  Weight: 55.34 kg

DRUGS (3)
  1. SAMSCA [Suspect]
     Active Substance: TOLVAPTAN
     Indication: Blood osmolarity decreased
     Dosage: 1 DF, QD (STRENGTH: 30MG)
     Route: 048
     Dates: start: 20180403
  2. SAMSCA [Suspect]
     Active Substance: TOLVAPTAN
     Indication: Hyponatraemia
  3. SAMSCA [Suspect]
     Active Substance: TOLVAPTAN
     Indication: Inappropriate antidiuretic hormone secretion

REACTIONS (14)
  - Death [Fatal]
  - Dementia [Not Recovered/Not Resolved]
  - Blood sodium decreased [Recovered/Resolved]
  - Bronchitis [Unknown]
  - Confusional state [Unknown]
  - Lethargy [Unknown]
  - Depression [Unknown]
  - Pain in extremity [Unknown]
  - Incorrect product administration duration [Unknown]
  - Therapy interrupted [Unknown]
  - Refusal of treatment by patient [Unknown]
  - Wrong technique in product usage process [Unknown]
  - Product use in unapproved indication [Unknown]
  - Incorrect product administration duration [Unknown]
